FAERS Safety Report 23854478 (Version 1)
Quarter: 2024Q2

REPORT INFORMATION
  Report Type: Spontaneous
  Country: NZ (occurrence: None)
  Receive Date: 20240514
  Receipt Date: 20240514
  Transmission Date: 20240716
  Serious: Yes (Hospitalization)
  Sender: FDA-Public Use
  Company Number: 2024A110023

PATIENT
  Age: 81 Year
  Sex: Male

DRUGS (10)
  1. DURVALUMAB [Suspect]
     Active Substance: DURVALUMAB
     Dosage: UNKNOWN
     Route: 042
  2. MORPHINE SULFATE [Concomitant]
     Active Substance: MORPHINE SULFATE
  3. NITROGLYCERIN [Concomitant]
     Active Substance: NITROGLYCERIN
  4. DOCUSATE SODIUM\SENNOSIDES A AND B [Concomitant]
     Active Substance: DOCUSATE SODIUM\SENNOSIDES A AND B
  5. ISOSORBIDE MONONITRATE [Concomitant]
     Active Substance: ISOSORBIDE MONONITRATE
  6. ASPIRIN [Concomitant]
     Active Substance: ASPIRIN
  7. TRAMADOL [Concomitant]
     Active Substance: TRAMADOL\TRAMADOL HYDROCHLORIDE
  8. ANORO ELLIPTA [Concomitant]
     Active Substance: UMECLIDINIUM BROMIDE\VILANTEROL TRIFENATATE
  9. DOXAZOSIN [Concomitant]
     Active Substance: DOXAZOSIN MESYLATE
  10. METOPROLOL [Concomitant]
     Active Substance: METOPROLOL

REACTIONS (2)
  - Pneumonia aspiration [Unknown]
  - Delirium [Recovered/Resolved]
